FAERS Safety Report 9007575 (Version 2)
Quarter: 2013Q1

REPORT INFORMATION
  Report Type: Spontaneous
  Country: KR (occurrence: KR)
  Receive Date: 20130111
  Receipt Date: 20130218
  Transmission Date: 20140127
  Serious: Yes (Death)
  Sender: FDA-Public Use
  Company Number: KR-009507513-1301KOR003087

PATIENT
  Age: 53 Year
  Sex: Female

DRUGS (2)
  1. NOXAFIL [Suspect]
     Indication: ROUTINE HEALTH MAINTENANCE
     Dosage: 600MG/DAY
     Route: 048
  2. NOXAFIL [Suspect]
     Indication: ANTIFUNGAL TREATMENT

REACTIONS (1)
  - Acute myeloid leukaemia [Fatal]
